FAERS Safety Report 7637550-0 (Version None)
Quarter: 2011Q3

REPORT INFORMATION
  Report Type: 
  Country: None (occurrence: None)
  Receive Date: 20110726
  Receipt Date: 20110720
  Transmission Date: 20111222
  Serious: No
  Sender: FDA-Public Use
  Company Number: US-PFIZER INC-2011164980

PATIENT
  Sex: Female

DRUGS (2)
  1. NARDIL [Suspect]
     Indication: HEADACHE
     Dosage: UNK
  2. BOTOX [Suspect]
     Indication: HEADACHE
     Dosage: UNK

REACTIONS (2)
  - DRUG EFFECT DECREASED [None]
  - MALAISE [None]
